FAERS Safety Report 7629210-7 (Version None)
Quarter: 2011Q3

REPORT INFORMATION
  Report Type: 
  Country: None (occurrence: None)
  Receive Date: 20110722
  Receipt Date: 20110711
  Transmission Date: 20111222
  Serious: Yes (Other)
  Sender: FDA-Public Use
  Company Number: PHFR2011GB03767

PATIENT
  Sex: Male

DRUGS (2)
  1. TEGRETOL-XR [Suspect]
     Indication: BENIGN ROLANDIC EPILEPSY
     Dosage: UNK
     Route: 048
     Dates: start: 20110601
  2. TEGRETOL-XR [Suspect]
     Indication: BENIGN ROLANDIC EPILEPSY
     Dosage: UNK
     Route: 048
     Dates: start: 20100901

REACTIONS (1)
  - CONVERSION DISORDER [None]
